FAERS Safety Report 5685013-4 (Version None)
Quarter: 2008Q1

REPORT INFORMATION
  Report Type: 
  Country: None (occurrence: None)
  Receive Date: 20080328
  Receipt Date: 19970709
  Transmission Date: 20080703
  Serious: Yes (Death, Hospitalization)
  Sender: FDA-Public Use
  Company Number: FR-ROCHE-83698

PATIENT
  Age: 31 Year
  Sex: Male

DRUGS (4)
  1. HIVID [Suspect]
     Indication: HIV INFECTION
     Route: 048
     Dates: start: 19960125
  2. ADIAZINE [Suspect]
     Indication: HIV INFECTION
     Route: 048
     Dates: end: 19960225
  3. LEDERFOLINE [Suspect]
     Indication: HIV INFECTION
     Route: 030
  4. MALOCIDE [Suspect]
     Indication: HIV INFECTION
     Route: 048

REACTIONS (3)
  - DEATH [None]
  - HAEMATEMESIS [None]
  - OESOPHAGEAL ULCER [None]
